FAERS Safety Report 7163754-X (Version None)
Quarter: 2010Q4

REPORT INFORMATION
  Report Type: 
  Country: None (occurrence: None)
  Receive Date: 20101215
  Receipt Date: 20100608
  Transmission Date: 20110411
  Serious: Yes (Other)
  Sender: FDA-Public Use
  Company Number: US-PFIZER INC-2010072261

PATIENT
  Sex: Female
  Weight: 72.562 kg

DRUGS (20)
  1. LYRICA [Suspect]
     Indication: ARTHRALGIA
     Dosage: UNK
     Route: 048
     Dates: start: 20100301
  2. LYRICA [Suspect]
  3. LYRICA [Suspect]
     Indication: MYALGIA
  4. LYRICA [Suspect]
     Indication: TENDON PAIN
  5. ATIVAN [Concomitant]
     Indication: ANXIETY
     Dosage: 1 MG, AS NEEDED
  6. DIAZEPAM [Concomitant]
     Indication: BLOOD PRESSURE INCREASED
     Dosage: 2 MG, UNK
  7. OMEPRAZOLE [Concomitant]
     Dosage: 20 MG, 2X/DAY
  8. SUDAFED 12 HOUR [Concomitant]
     Dosage: 30 MG, 2X/DAY
  9. PATANOL [Concomitant]
     Dosage: UNK
     Route: 047
  10. PRAVASTATIN [Concomitant]
     Dosage: 80 MG, 1X/DAY
  11. TRAZODONE [Concomitant]
     Dosage: 50MG 2-3 TABLETS ONCE A DAY
  12. CLARITIN [Concomitant]
     Dosage: 10 MG, 1X/DAY
  13. DEPAKOTE [Concomitant]
     Dosage: 250 MG, 2X/DAY
  14. ADVAIR [Concomitant]
     Dosage: 239/21
  15. VENTOLIN [Concomitant]
     Dosage: 90 UG, AS NEEDED
  16. VICODIN [Concomitant]
     Dosage: 5/500
  17. FOSAMAX [Concomitant]
     Dosage: 70 MG, 1X/DAY
  18. CALCIUM WITH VITAMIN D [Concomitant]
     Dosage: 2000 IU, 2X/DAY
  19. AMBIEN [Concomitant]
     Indication: INSOMNIA
     Dosage: 10 MG ONCE A DAY AS NEEDED
  20. PEPCID [Concomitant]
     Dosage: 20 MG, 2X/DAY

REACTIONS (3)
  - ARTHRITIS [None]
  - BEDRIDDEN [None]
  - PAIN [None]
